FAERS Safety Report 11228877 (Version 1)
Quarter: 2015Q2

REPORT INFORMATION
  Report Type: Spontaneous
  Country: IN (occurrence: IN)
  Receive Date: 20150630
  Receipt Date: 20150630
  Transmission Date: 20150821
  Serious: Yes (Death, Hospitalization, Other)
  Sender: FDA-Public Use
  Company Number: IN-GLAXOSMITHKLINE-IN2015GSK093631

PATIENT
  Age: 26 Year
  Sex: Female

DRUGS (3)
  1. LAMIVUDINE. [Suspect]
     Active Substance: LAMIVUDINE
     Indication: HIV INFECTION
  2. ZIDOVUDINE. [Suspect]
     Active Substance: ZIDOVUDINE
     Indication: HIV INFECTION
  3. NEVIRAPINE. [Suspect]
     Active Substance: NEVIRAPINE
     Indication: HIV INFECTION

REACTIONS (15)
  - Pyrexia [Unknown]
  - Cough [Unknown]
  - Splenomegaly [Unknown]
  - Abdominal pain upper [Unknown]
  - Asthenia [Unknown]
  - Dyspepsia [Unknown]
  - Vomiting [Unknown]
  - Hepatomegaly [Unknown]
  - Death [Fatal]
  - Anaemia [Fatal]
  - Decreased appetite [Unknown]
  - Gastritis [Unknown]
  - Abdominal pain [Unknown]
  - Pallor [Unknown]
  - Liver function test abnormal [Unknown]
